FAERS Safety Report 5155925-9 (Version None)
Quarter: 2006Q4

REPORT INFORMATION
  Report Type: 
  Country: None (occurrence: None)
  Receive Date: 20061114
  Receipt Date: 20061101
  Transmission Date: 20070319
  Serious: Yes (Other)
  Sender: FDA-Public Use
  Company Number: 2006101950

PATIENT
  Sex: Female

DRUGS (7)
  1. CELEBREX [Suspect]
     Indication: PAIN
  2. LEXAPRO [Concomitant]
  3. AVANDIA [Concomitant]
  4. GLUCOPHAGE [Concomitant]
  5. LIPITOR [Concomitant]
  6. LASIX [Concomitant]
  7. ALBUTEROL [Concomitant]

REACTIONS (3)
  - HYPERSENSITIVITY [None]
  - SINUS HEADACHE [None]
  - WRIST FRACTURE [None]
